FAERS Safety Report 6389227-X (Version None)
Quarter: 2009Q4

REPORT INFORMATION
  Report Type: 
  Country: None (occurrence: None)
  Receive Date: 20091006
  Receipt Date: 20090924
  Transmission Date: 20100525
  Serious: Yes (Hospitalization)
  Sender: FDA-Public Use
  Company Number: PHHO2009US07444

PATIENT

DRUGS (13)
  1. DIOVAN [Suspect]
     Indication: HYPERTENSION
     Dosage: UNK
     Dates: start: 20030101
  2. RAD 666 RAD+TAB [Suspect]
     Indication: BREAST CANCER METASTATIC
     Dosage: 30 MG, QW
     Route: 042
     Dates: start: 20090423, end: 20090521
  3. CISPLATIN [Suspect]
     Indication: BREAST CANCER METASTATIC
     Dosage: 25 MG/M2, QW
     Route: 042
     Dates: start: 20090423, end: 20090521
  4. PACLITAXEL [Suspect]
     Indication: BREAST CANCER METASTATIC
     Dosage: 80 MG/M2, QW
     Route: 042
     Dates: start: 20090423, end: 20090521
  5. NORVASC [Concomitant]
     Dosage: UNK
     Dates: start: 20010101
  6. LASIX [Concomitant]
     Dosage: UNK
     Dates: start: 19990101
  7. HYDROCODONE [Concomitant]
     Dosage: UNK
     Dates: start: 20060101
  8. ATIVAN [Concomitant]
     Dosage: UNK
     Dates: start: 19990101
  9. PRILOSEC [Concomitant]
     Dosage: UNK
     Dates: start: 20080101
  10. COMPAZINE [Concomitant]
     Dosage: UNK
     Dates: start: 20060101
  11. PREDNISONE TAB [Concomitant]
     Dosage: UNK
     Dates: start: 20080101
  12. ONDANSETRON [Concomitant]
     Dosage: UNK
     Dates: start: 20090423
  13. PHENAZOPYRIDINE HCL TAB [Concomitant]
     Dosage: UNK
     Dates: start: 20090101

REACTIONS (3)
  - HYPONATRAEMIA [None]
  - NAUSEA [None]
  - VOMITING [None]
